FAERS Safety Report 6301532-1 (Version None)
Quarter: 2009Q3

REPORT INFORMATION
  Report Type: 
  Country: None (occurrence: None)
  Receive Date: 20090807
  Receipt Date: 20090731
  Transmission Date: 20100115
  Serious: Yes (Hospitalization)
  Sender: FDA-Public Use
  Company Number: AT-ASTRAZENECA-2009SE06700

PATIENT
  Sex: Male
  Weight: 83 kg

DRUGS (10)
  1. ACECOMB [Suspect]
     Route: 048
  2. LASIX [Suspect]
     Route: 065
  3. LESCOL [Concomitant]
     Route: 048
  4. OMEC HEXAL [Concomitant]
     Route: 048
  5. NOMEXOR [Concomitant]
     Route: 048
  6. ASPIRIN [Concomitant]
     Route: 048
  7. TRILEPTAL [Concomitant]
     Route: 048
  8. ZANIDIP [Concomitant]
     Route: 048
  9. ALLOPURINOL [Concomitant]
     Route: 065
  10. ISOSORBIDE MONONITRATE [Concomitant]

REACTIONS (2)
  - HYPOKALAEMIA [None]
  - RENAL IMPAIRMENT [None]
